FAERS Safety Report 7701227-3 (Version None)
Quarter: 2011Q3

REPORT INFORMATION
  Report Type: 
  Country: None (occurrence: None)
  Receive Date: 20110822
  Receipt Date: 20110816
  Transmission Date: 20111222
  Serious: Yes (Disabling)
  Sender: FDA-Public Use
  Company Number: BR-GLAXOSMITHKLINE-A0930433B

PATIENT
  Sex: Female
  Weight: 52.3 kg

DRUGS (4)
  1. LAPATINIB [Suspect]
     Indication: BREAST CANCER METASTATIC
     Dosage: 1250MG PER DAY
     Route: 048
  2. BETNOVATE [Concomitant]
  3. ENOXAPARIN SODIUM [Concomitant]
  4. CAPECITABINE [Suspect]
     Indication: BREAST CANCER METASTATIC
     Dosage: 2500MG TWICE PER DAY
     Route: 048

REACTIONS (1)
  - PALMAR-PLANTAR ERYTHRODYSAESTHESIA SYNDROME [None]
